FAERS Safety Report 4805309-5 (Version None)
Quarter: 2005Q4

REPORT INFORMATION
  Report Type: 
  Country: None (occurrence: None)
  Receive Date: 20051020
  Receipt Date: 20050701
  Transmission Date: 20060501
  Serious: Yes (Hospitalization)
  Sender: FDA-Public Use
  Company Number: US-MERCK-0507USA00490

PATIENT
  Age: 60 Year
  Sex: Female
  Weight: 85 kg

DRUGS (12)
  1. VIOXX [Suspect]
     Indication: OSTEOARTHRITIS
     Route: 048
     Dates: start: 20030101, end: 20040101
  2. INDERAL LA [Concomitant]
     Indication: HYPERTENSION
     Route: 065
     Dates: end: 20040302
  3. SINGULAIR [Concomitant]
     Indication: ASTHMA
     Route: 065
  4. SINGULAIR [Concomitant]
     Indication: HYPERSENSITIVITY
     Route: 065
  5. LASIX [Concomitant]
     Indication: HYPERTENSION
     Route: 065
     Dates: end: 20040302
  6. SYNTHROID [Concomitant]
     Indication: HYPOTHYROIDISM
     Route: 065
  7. ACTOS [Concomitant]
     Route: 065
  8. FLONASE [Concomitant]
     Indication: ASTHMA
     Route: 065
  9. FLONASE [Concomitant]
     Indication: HYPERSENSITIVITY
     Route: 065
  10. ADVAIR DISKUS 100/50 [Concomitant]
     Indication: ASTHMA
     Route: 065
  11. ADVAIR DISKUS 100/50 [Concomitant]
     Indication: HYPERSENSITIVITY
     Route: 065
  12. PREMARIN [Concomitant]
     Route: 065
     Dates: start: 19890101, end: 20040101

REACTIONS (7)
  - ARTHROPATHY [None]
  - ASTHMA [None]
  - CARDIAC DISORDER [None]
  - DRUG HYPERSENSITIVITY [None]
  - HYPERTENSION [None]
  - MYOCARDIAL INFARCTION [None]
  - THYROID DISORDER [None]
